FAERS Safety Report 8492495-1 (Version None)
Quarter: 2012Q3

REPORT INFORMATION
  Report Type: 
  Country: None (occurrence: None)
  Receive Date: 20120706
  Receipt Date: 20120703
  Transmission Date: 20120928
  Serious: No
  Sender: FDA-Public Use
  Company Number: US-PFIZER INC-2012146444

PATIENT
  Sex: Female
  Weight: 89.3 kg

DRUGS (17)
  1. SUTENT [Suspect]
     Indication: METASTATIC RENAL CELL CARCINOMA
     Dosage: 50 MG (4 CAPSULES OF 12.5 MG), 1X/DAY, 4 WEEKS ON/2 WEEKS OFF
     Route: 048
     Dates: start: 20120612
  2. SPIRONOLACTONE [Concomitant]
     Dosage: UNK
  3. VITAMIN E [Concomitant]
     Dosage: UNK
  4. VITAMIN B-12 [Concomitant]
     Dosage: UNK
  5. URSODIOL [Concomitant]
     Dosage: UNK
  6. CALCIUM [Concomitant]
     Dosage: UNK
  7. LYRICA [Concomitant]
     Dosage: UNK
  8. VITAMIN D [Concomitant]
  9. HUMALOG [Concomitant]
     Dosage: UNK
  10. FUROSEMIDE [Concomitant]
     Dosage: UNK
  11. LEVOTHYROXINE SODIUM [Concomitant]
     Dosage: UNK
  12. MAGNESIUM [Concomitant]
     Dosage: UNK
  13. POTASSIUM [Concomitant]
     Dosage: UNK
  14. VITAMIN K TAB [Concomitant]
     Dosage: UNK
  15. CINNAMON [Concomitant]
     Dosage: UNK
  16. RIFAXIMIN [Concomitant]
     Dosage: UNK
  17. LANTUS [Concomitant]
     Dosage: UNK

REACTIONS (1)
  - HEADACHE [None]
